FAERS Safety Report 25976795 (Version 2)
Quarter: 2025Q4

REPORT INFORMATION
  Report Type: Spontaneous
  Country: US (occurrence: US)
  Receive Date: 20251029
  Receipt Date: 20251109
  Transmission Date: 20260118
  Serious: No
  Sender: Kenvue
  Company Number: US-KENVUE-20251004835

PATIENT
  Sex: Male

DRUGS (1)
  1. MENS ROGAINE EXTRA STRENGTH [Suspect]
     Active Substance: MINOXIDIL
     Indication: Alopecia
     Dosage: PALMFUL, TWICE A DAY, 1.5 TO 2 CANS PER MONTH
     Route: 061
     Dates: start: 20200101

REACTIONS (1)
  - Product use issue [Unknown]
